FAERS Safety Report 24425231 (Version 1)
Quarter: 2024Q4

REPORT INFORMATION
  Report Type: Report from Study
  Country: US (occurrence: US)
  Receive Date: 20241010
  Receipt Date: 20241010
  Transmission Date: 20250115
  Serious: Yes (Other)
  Sender: JOHNSON AND JOHNSON
  Company Number: US-JNJFOC-20241016490

PATIENT
  Age: 4 Decade
  Sex: Female

DRUGS (4)
  1. SPRAVATO [Suspect]
     Active Substance: ESKETAMINE
     Indication: Depression
     Dosage: ^^28 MG, 1 TOTAL DOSE^^
     Dates: start: 20240401, end: 20240401
  2. SPRAVATO [Suspect]
     Active Substance: ESKETAMINE
     Dosage: ^^56 MG, 3 TOTAL DOSES^^
     Dates: start: 20240404, end: 20240411
  3. SPRAVATO [Suspect]
     Active Substance: ESKETAMINE
     Dosage: ^^28 MG, 1 TOTAL DOSE^^
     Dates: start: 20240417, end: 20240417
  4. SPRAVATO [Suspect]
     Active Substance: ESKETAMINE
     Dosage: ^^56 MG, 10 TOTAL DOSES^^
     Dates: start: 20240419, end: 20240826

REACTIONS (3)
  - Suicidal ideation [Unknown]
  - Panic attack [Unknown]
  - Depression [Unknown]

NARRATIVE: CASE EVENT DATE: 20240101
